FAERS Safety Report 13234520 (Version 1)
Quarter: 2017Q1

REPORT INFORMATION
  Report Type: Spontaneous
  Country: US (occurrence: US)
  Receive Date: 20170215
  Receipt Date: 20170215
  Transmission Date: 20170428
  Serious: No
  Sender: FDA-Public Use
  Company Number: US-PFIZER INC-2017059932

PATIENT
  Age: 49 Year
  Sex: Male

DRUGS (1)
  1. IBRANCE [Suspect]
     Active Substance: PALBOCICLIB
     Dosage: 125 MG, CYCLIC, (TAKE 1 CAPSULE EVERY DAY FOR 21 DAYS THEN OFF 7 DAYS)
     Route: 048

REACTIONS (2)
  - Product use issue [Unknown]
  - Oral herpes [Unknown]
